FAERS Safety Report 19497105 (Version 1)
Quarter: 2021Q3

REPORT INFORMATION
  Report Type: Spontaneous
  Country: US (occurrence: US)
  Receive Date: 20210702
  Receipt Date: 20210702
  Transmission Date: 20211014
  Serious: Yes (Hospitalization)
  Sender: FDA-Public Use
  Company Number: None

PATIENT
  Sex: Female

DRUGS (1)
  1. ENBREL [Suspect]
     Active Substance: ETANERCEPT
     Indication: RHEUMATOID ARTHRITIS
     Route: 058
     Dates: start: 20210420

REACTIONS (7)
  - Headache [None]
  - Decreased appetite [None]
  - Fluid retention [None]
  - Asthenia [None]
  - Vomiting [None]
  - Pyrexia [None]
  - Abdominal distension [None]
